FAERS Safety Report 22800523 (Version 4)
Quarter: 2024Q1

REPORT INFORMATION
  Report Type: Spontaneous
  Country: US (occurrence: US)
  Receive Date: 20230808
  Receipt Date: 20240129
  Transmission Date: 20240410
  Serious: Yes (Other)
  Sender: FDA-Public Use
  Company Number: US-BRISTOL-MYERS SQUIBB COMPANY-2023-110645

PATIENT
  Age: 70 Year
  Sex: Male

DRUGS (2)
  1. LENALIDOMIDE [Suspect]
     Active Substance: LENALIDOMIDE
     Indication: Plasma cell myeloma in remission
     Dosage: TAKE 1 CAPSULE (10MG) BY MOUTH EVERY DAY ON DAYS 1-21 EVERY 28 DAY CYCLE
     Route: 048
     Dates: start: 20221117
  2. LENALIDOMIDE [Suspect]
     Active Substance: LENALIDOMIDE
     Dosage: TAKE 1 CAPSULE (10MG) BY MOUTH EVERY DAY ON DAYS 1-21 EVERY 28 DAY CYCLE
     Route: 048
     Dates: start: 20231117

REACTIONS (4)
  - Oedema peripheral [Not Recovered/Not Resolved]
  - Gout [Not Recovered/Not Resolved]
  - Swelling [Not Recovered/Not Resolved]
  - Pain in extremity [Not Recovered/Not Resolved]
